FAERS Safety Report 8073497-6 (Version None)
Quarter: 2012Q1

REPORT INFORMATION
  Report Type: 
  Country: None (occurrence: None)
  Receive Date: 20120126
  Receipt Date: 20120126
  Transmission Date: 20120608
  Serious: Yes (Other)
  Sender: FDA-Public Use
  Company Number: None

PATIENT
  Age: 58 Year
  Sex: Female
  Weight: 102.05 kg

DRUGS (4)
  1. SEROQUEL [Suspect]
     Indication: DEPRESSION
     Dosage: 200.0 MG
     Route: 048
  2. SEROQUEL [Suspect]
     Indication: POST-TRAUMATIC STRESS DISORDER
     Dosage: 200.0 MG
     Route: 048
  3. SEROQUEL [Suspect]
     Indication: BIPOLAR DISORDER
     Dosage: 200.0 MG
     Route: 048
  4. SEROQUEL [Suspect]
     Indication: DISSOCIATIVE DISORDER
     Dosage: 200.0 MG
     Route: 048

REACTIONS (10)
  - NEUROLEPTIC MALIGNANT SYNDROME [None]
  - ARTHRALGIA [None]
  - WEIGHT INCREASED [None]
  - MYALGIA [None]
  - THERAPY CESSATION [None]
  - ACTIVITIES OF DAILY LIVING IMPAIRED [None]
  - CHROMATURIA [None]
  - FLUID INTAKE REDUCED [None]
  - PAIN [None]
  - MALAISE [None]
